FAERS Safety Report 5390947-4 (Version None)
Quarter: 2007Q3

REPORT INFORMATION
  Report Type: 
  Country: None (occurrence: None)
  Receive Date: 20070717
  Receipt Date: 20070705
  Transmission Date: 20080115
  Serious: Yes (Other)
  Sender: FDA-Public Use
  Company Number: TPA2007A01059

PATIENT
  Age: 51 Year
  Sex: Male

DRUGS (3)
  1. ROZEREM [Suspect]
     Indication: CIRCADIAN RHYTHM SLEEP DISORDER
     Dosage: 8 MG, ONCE, PER ORAL
     Route: 048
  2. ROZEREM [Suspect]
     Indication: INSOMNIA
     Dosage: 8 MG, ONCE, PER ORAL
     Route: 048
  3. VITAMIN (VITAMINS) [Concomitant]

REACTIONS (4)
  - CATATONIA [None]
  - FEAR [None]
  - HYPOKINESIA [None]
  - LACK OF SPONTANEOUS SPEECH [None]
